FAERS Safety Report 19131877 (Version 3)
Quarter: 2021Q2

REPORT INFORMATION
  Report Type: Report from Study
  Country: US (occurrence: US)
  Receive Date: 20210414
  Receipt Date: 20210609
  Transmission Date: 20210717
  Serious: No
  Sender: FDA-Public Use
  Company Number: NVSC2021US080606

PATIENT
  Sex: Male

DRUGS (3)
  1. ENTRESTO [Suspect]
     Active Substance: SACUBITRIL\VALSARTAN
     Indication: PRODUCT USED FOR UNKNOWN INDICATION
     Dosage: 50 MG, BID(24/26 MG)
     Route: 048
     Dates: start: 20210405
  2. VALSARTAN+SIMVASTATIN [Suspect]
     Active Substance: SIMVASTATIN\VALSARTAN
     Indication: PRODUCT USED FOR UNKNOWN INDICATION
     Route: 065
  3. METOPROLOL TARTRATE. [Suspect]
     Active Substance: METOPROLOL TARTRATE
     Indication: PRODUCT USED FOR UNKNOWN INDICATION
     Route: 065

REACTIONS (4)
  - Blood urea nitrogen/creatinine ratio increased [Unknown]
  - Heart rate increased [Not Recovered/Not Resolved]
  - Blood cholesterol [Unknown]
  - Blood pressure decreased [Not Recovered/Not Resolved]
